FAERS Safety Report 8588208-5 (Version None)
Quarter: 2012Q3

REPORT INFORMATION
  Report Type: 
  Country: None (occurrence: None)
  Receive Date: 20120803
  Receipt Date: 20120803
  Transmission Date: 20120928
  Serious: Yes (Other)
  Sender: FDA-Public Use
  Company Number: None

PATIENT
  Age: 51 Year
  Sex: Female
  Weight: 108.8633 kg

DRUGS (1)
  1. CYMBALTA [Suspect]
     Indication: BACK PAIN
     Dosage: 1 CAPSULE DAILY
     Dates: start: 20110601, end: 20120801

REACTIONS (11)
  - WEIGHT INCREASED [None]
  - FATIGUE [None]
  - HYPOAESTHESIA [None]
  - VOMITING [None]
  - PARAESTHESIA [None]
  - DEPRESSION [None]
  - MEMORY IMPAIRMENT [None]
  - MALAISE [None]
  - HEADACHE [None]
  - NAUSEA [None]
  - IMPAIRED WORK ABILITY [None]
